FAERS Safety Report 14732114 (Version 4)
Quarter: 2023Q4

REPORT INFORMATION
  Report Type: Spontaneous
  Country: FR (occurrence: FR)
  Receive Date: 20180409
  Receipt Date: 20231107
  Transmission Date: 20240110
  Serious: Yes (Hospitalization)
  Sender: FDA-Public Use
  Company Number: None

PATIENT
  Age: 78 Year
  Sex: Female
  Weight: 68 kg

DRUGS (17)
  1. PREDNISONE [Suspect]
     Active Substance: PREDNISONE
     Indication: Chronic obstructive pulmonary disease
     Dosage: 4 TREATMENTS CYCLES OF 5 DAYS IN 2006
     Route: 048
     Dates: start: 201708
  2. XELODA [Suspect]
     Active Substance: CAPECITABINE
     Indication: Rectal cancer
     Dosage: UNK 4 TREATMENTS CYCLES OF 5 DAYS IN 2006 (LAST DOSE)
     Route: 048
     Dates: start: 2006
  3. OXALIPLATIN [Suspect]
     Active Substance: OXALIPLATIN
     Indication: Rectal cancer
     Dosage: LAST DOSE PRIOR TO ONSET OF EVENTS IN 2006
     Route: 042
     Dates: start: 2006
  4. PULMICORT TURBUHALER [Suspect]
     Active Substance: BUDESONIDE
     Indication: Chronic obstructive pulmonary disease
     Route: 055
     Dates: start: 2015
  5. SINGULAIR [Suspect]
     Active Substance: MONTELUKAST SODIUM
     Indication: Asthma
     Route: 048
     Dates: start: 2015
  6. SINGULAIR [Suspect]
     Active Substance: MONTELUKAST SODIUM
     Route: 048
     Dates: start: 2015
  7. BUMETANIDE [Suspect]
     Active Substance: BUMETANIDE
     Indication: Hypertension
     Route: 048
     Dates: start: 201708
  8. POTASSIUM CHLORIDE [Suspect]
     Active Substance: POTASSIUM CHLORIDE
     Indication: Hypokalaemia
     Route: 048
     Dates: start: 201708
  9. FLUCONAZOLE [Suspect]
     Active Substance: FLUCONAZOLE
     Indication: Fungal infection
     Dosage: 50 MOUTHWASH
     Route: 002
     Dates: start: 201708
  10. FLUCONAZOLE [Suspect]
     Active Substance: FLUCONAZOLE
     Indication: Fungal infection
  11. ALBUTEROL [Suspect]
     Active Substance: ALBUTEROL
     Indication: Asthma
     Route: 055
     Dates: start: 201708
  12. THEOPHYLLINE [Suspect]
     Active Substance: THEOPHYLLINE
     Indication: Chronic obstructive pulmonary disease
     Route: 048
  13. THEOPHYLLINE [Suspect]
     Active Substance: THEOPHYLLINE
     Route: 048
  14. THEOPHYLLINE [Suspect]
     Active Substance: THEOPHYLLINE
     Route: 048
     Dates: start: 2015
  15. BOTULINUM TOXIN TYPE A [Suspect]
     Active Substance: BOTULINUM TOXIN TYPE A
     Indication: Anal incontinence
     Dosage: 500 UNITS, SINGLE/ 9 INJECTIONS DE 500 UNITES?LAST DOSE PRIOR TO ONSET OF EVENT ON JAN/2012.
     Route: 030
     Dates: start: 201201
  16. BOTULINUM TOXIN TYPE A [Suspect]
     Active Substance: BOTULINUM TOXIN TYPE A
     Dosage: 500 UNITS, SINGLE
     Route: 030
  17. GLYCOPYRRONIUM\INDACATEROL [Suspect]
     Active Substance: GLYCOPYRRONIUM\INDACATEROL
     Indication: Chronic obstructive pulmonary disease
     Route: 055

REACTIONS (3)
  - Left ventricular failure [Not Recovered/Not Resolved]
  - Dilated cardiomyopathy [Not Recovered/Not Resolved]
  - Arteriosclerosis coronary artery [Not Recovered/Not Resolved]

NARRATIVE: CASE EVENT DATE: 20170801
